FAERS Safety Report 23949300 (Version 1)
Quarter: 2024Q2

REPORT INFORMATION
  Report Type: Spontaneous
  Country: US (occurrence: US)
  Receive Date: 20240607
  Receipt Date: 20240607
  Transmission Date: 20240716
  Serious: No
  Sender: FDA-Public Use
  Company Number: US-SANOFI-02075221

PATIENT
  Age: 78 Year
  Sex: Male

DRUGS (2)
  1. APIDRA [Suspect]
     Active Substance: INSULIN GLULISINE
     Indication: Diabetes mellitus
  2. ADMELOG [Concomitant]
     Active Substance: INSULIN LISPRO

REACTIONS (1)
  - Product storage error [Unknown]
